FAERS Safety Report 12893346 (Version 1)
Quarter: 2016Q4

REPORT INFORMATION
  Report Type: Spontaneous
  Country: None (occurrence: US)
  Receive Date: 20161027
  Receipt Date: 20161027
  Transmission Date: 20170207
  Serious: No
  Sender: FDA-Public Use
  Company Number: None

PATIENT
  Age: 62 Year
  Sex: Female

DRUGS (1)
  1. HUMIRA [Suspect]
     Active Substance: ADALIMUMAB
     Indication: RHEUMATOID ARTHRITIS
     Dosage: 40MG EVERY 14 DAYS SUBCUTANEOULSY
     Route: 058
     Dates: start: 20160816, end: 20161004

REACTIONS (2)
  - Rash [None]
  - Herpes zoster [None]

NARRATIVE: CASE EVENT DATE: 20161004
